FAERS Safety Report 4947494-0 (Version None)
Quarter: 2006Q1

REPORT INFORMATION
  Report Type: 
  Country: None (occurrence: None)
  Receive Date: 20060314
  Receipt Date: 20060222
  Transmission Date: 20060701
  Serious: Yes (Congenital Anomaly)
  Sender: FDA-Public Use
  Company Number: DE200602004876

PATIENT

DRUGS (3)
  1. HUMALOG [Suspect]
     Dosage: TRANSPLACENTAL
     Route: 064
     Dates: start: 20020301, end: 20021201
  2. COVERSUM /GFF/ (PERINDOPRIL) [Concomitant]
  3. METOPROLOL SUCCINATE [Concomitant]

REACTIONS (6)
  - CONGENITAL FOOT MALFORMATION [None]
  - CONGENITAL JOINT MALFORMATION [None]
  - DRUG EXPOSURE DURING PREGNANCY [None]
  - FIBULA AGENESIS [None]
  - LIMB MALFORMATION [None]
  - LIMB REDUCTION DEFECT [None]
